FAERS Safety Report 9229598 (Version 2)
Quarter: 2013Q2

REPORT INFORMATION
  Report Type: Spontaneous
  Country: US (occurrence: US)
  Receive Date: 20130414
  Receipt Date: 20130503
  Transmission Date: 20140414
  Serious: Yes (Hospitalization)
  Sender: FDA-Public Use
  Company Number: US-B.I. PHARMACEUTICALS,INC./RIDGEFIELD-2013-BI-09758BP

PATIENT
  Age: 65 Year
  Sex: Male

DRUGS (9)
  1. PRADAXA [Suspect]
     Indication: CEREBROVASCULAR ACCIDENT PROPHYLAXIS
     Dosage: 300 MG
     Route: 048
     Dates: start: 201103, end: 20130330
  2. PRADAXA [Suspect]
     Indication: ATRIAL FIBRILLATION
     Dosage: 300 MG
     Route: 048
     Dates: start: 20130402
  3. METOPROLOL [Concomitant]
     Indication: HYPERTENSION
     Dosage: 50 MG
  4. METOPROLOL [Concomitant]
     Indication: ATRIAL FIBRILLATION
  5. SIMVASTATIN [Concomitant]
     Indication: HYPERLIPIDAEMIA
     Dosage: 20 MG
  6. VITAMIN B12 [Concomitant]
     Dosage: 500 MCG
  7. FOLIC ACID [Concomitant]
     Dosage: 1 MG
  8. MULTIVITAMIN [Concomitant]
  9. FISH OIL [Concomitant]
     Dosage: 1000 MG

REACTIONS (3)
  - Transient ischaemic attack [Recovered/Resolved]
  - Bradycardia [Recovered/Resolved]
  - Skin infection [Recovered/Resolved]
